FAERS Safety Report 17956030 (Version 11)
Quarter: 2021Q3

REPORT INFORMATION
  Report Type: Spontaneous
  Country: US (occurrence: US)
  Receive Date: 20200629
  Receipt Date: 20210705
  Transmission Date: 20211014
  Serious: Yes (Other)
  Sender: FDA-Public Use
  Company Number: US-PFIZER INC-2020058350

PATIENT
  Age: 73 Year
  Sex: Female
  Weight: 118.84 kg

DRUGS (2)
  1. IBRANCE [Suspect]
     Active Substance: PALBOCICLIB
     Dosage: 75 MG
     Route: 048
  2. IBRANCE [Suspect]
     Active Substance: PALBOCICLIB
     Indication: BREAST CANCER FEMALE
     Dosage: 100 MG, CYCLIC (1 CAPSULE BY MOUTH DAILY IN AM FOR 21 DAYS THEN REST BODY FOR 7 DAYS)
     Route: 048
     Dates: start: 201907

REACTIONS (8)
  - White blood cell count decreased [Unknown]
  - Decreased activity [Unknown]
  - Alopecia [Unknown]
  - Fatigue [Unknown]
  - Stress [Unknown]
  - Type 2 diabetes mellitus [Recovered/Resolved]
  - Palpitations [Unknown]
  - Weight increased [Unknown]

NARRATIVE: CASE EVENT DATE: 2019
